FAERS Safety Report 9406483 (Version 1)
Quarter: 2013Q3

REPORT INFORMATION
  Report Type: Report from Study
  Country: US (occurrence: US)
  Receive Date: 20130718
  Receipt Date: 20130718
  Transmission Date: 20140515
  Serious: Yes (Life-Threatening, Hospitalization)
  Sender: FDA-Public Use
  Company Number: US-ROCHE-1247392

PATIENT
  Age: 33 Year
  Sex: Female

DRUGS (3)
  1. KLONOPIN [Suspect]
     Indication: PRODUCT USED FOR UNKNOWN INDICATION
     Route: 065
  2. COPAXONE [Suspect]
     Indication: MULTIPLE SCLEROSIS
     Route: 065
     Dates: start: 20071019
  3. SOLU-MEDROL [Suspect]
     Indication: PRODUCT USED FOR UNKNOWN INDICATION
     Route: 065

REACTIONS (10)
  - Multiple sclerosis relapse [Unknown]
  - Convulsion [Unknown]
  - Psychogenic seizure [Unknown]
  - Cardio-respiratory arrest [Unknown]
  - Fatigue [Unknown]
  - Eye pain [Unknown]
  - Feeling hot [Recovered/Resolved]
  - Palpitations [Recovered/Resolved]
  - Asthenia [Unknown]
  - Drug withdrawal convulsions [Unknown]
